FAERS Safety Report 6367911-1 (Version None)
Quarter: 2009Q3

REPORT INFORMATION
  Report Type: 
  Country: None (occurrence: None)
  Receive Date: 20090922
  Receipt Date: 20090911
  Transmission Date: 20100115
  Serious: Yes (Other)
  Sender: FDA-Public Use
  Company Number: RU-BAYER-200932334GPV

PATIENT
  Age: 28 Year
  Sex: Female

DRUGS (2)
  1. BETAFERON [Suspect]
     Indication: MULTIPLE SCLEROSIS
     Route: 058
     Dates: start: 20070501, end: 20080101
  2. BETAFERON [Suspect]
     Route: 058
     Dates: start: 20080501

REACTIONS (6)
  - ANAEMIA [None]
  - DUODENAL ULCER HAEMORRHAGE [None]
  - MELAENA [None]
  - NERVOUSNESS [None]
  - PYREXIA [None]
  - THROMBOCYTOPENIA [None]
